FAERS Safety Report 7713833-0 (Version None)
Quarter: 2011Q3

REPORT INFORMATION
  Report Type: 
  Country: None (occurrence: None)
  Receive Date: 20110826
  Receipt Date: 20110816
  Transmission Date: 20111222
  Serious: Yes (Hospitalization)
  Sender: FDA-Public Use
  Company Number: AU-TEVA-297221ISR

PATIENT
  Sex: Female
  Weight: 59.1 kg

DRUGS (8)
  1. DEXAMETHASONE [Suspect]
     Indication: MULTIPLE MYELOMA
     Dosage: 20 MILLIGRAM;
     Dates: start: 20100521
  2. TEMAZEPAM [Concomitant]
     Indication: INSOMNIA
     Route: 048
     Dates: start: 20100530
  3. IRBESARTAN [Concomitant]
     Indication: HYPERTENSION
     Dosage: 75 MILLIGRAM;
     Route: 048
     Dates: start: 20080501
  4. PANTOPRAZOLE [Concomitant]
     Indication: GASTROOESOPHAGEAL REFLUX DISEASE
     Dosage: 40 MILLIGRAM;
     Route: 048
     Dates: start: 20080501, end: 20091210
  5. ACETAMINOPHEN [Concomitant]
     Indication: BACK PAIN
     Route: 048
     Dates: start: 20100301
  6. ROSUVASTATIN CALCIUM [Concomitant]
     Indication: HYPERCHOLESTEROLAEMIA
     Dosage: 5 MILLIGRAM;
     Route: 048
  7. ASPIRIN [Concomitant]
     Indication: PROPHYLAXIS
     Dosage: 100 MILLIGRAM;
     Route: 048
     Dates: start: 20080501, end: 20091210
  8. LENALIDOMIDE [Suspect]
     Indication: MULTIPLE MYELOMA
     Dosage: 10 MILLIGRAM;
     Route: 048
     Dates: start: 20100521

REACTIONS (1)
  - PALPITATIONS [None]
